FAERS Safety Report 7481572-X (Version None)
Quarter: 2011Q2

REPORT INFORMATION
  Report Type: 
  Country: None (occurrence: None)
  Receive Date: 20110516
  Receipt Date: 20110509
  Transmission Date: 20111010
  Serious: Yes (Other)
  Sender: FDA-Public Use
  Company Number: SE-NAPPMUNDI-GBR-2011-0008166

PATIENT
  Sex: Female

DRUGS (6)
  1. MORPHINE SULFATE [Suspect]
     Indication: PAIN
     Dosage: 40 MG, DAILY
     Route: 048
     Dates: start: 20110227, end: 20110304
  2. KALCIPOS-D [Concomitant]
  3. FURIX [Concomitant]
  4. MORPHINE SULFATE [Suspect]
  5. MOVICOL                            /01625101/ [Concomitant]
  6. OMEPRAZOLE [Concomitant]

REACTIONS (3)
  - SOMNOLENCE [None]
  - DEPRESSED LEVEL OF CONSCIOUSNESS [None]
  - DYSPNOEA [None]
